FAERS Safety Report 6648089-3 (Version None)
Quarter: 2010Q1

REPORT INFORMATION
  Report Type: 
  Country: None (occurrence: None)
  Receive Date: 20100324
  Receipt Date: 20100319
  Transmission Date: 20100710
  Serious: Yes (Life-Threatening, Hospitalization, Other)
  Sender: FDA-Public Use
  Company Number: PHHY2010FR14016

PATIENT
  Sex: Female
  Weight: 62 kg

DRUGS (6)
  1. RASILEZ [Suspect]
     Indication: HYPERTENSION
     Dosage: 300 MG, QD
     Dates: start: 20091217, end: 20100226
  2. IMUREL [Suspect]
     Dosage: 2 MG/ KG DAILY
     Dates: start: 20100101, end: 20100226
  3. GLUCOPHAGE [Concomitant]
     Indication: TYPE 2 DIABETES MELLITUS
     Dosage: 3 DF, UNK
  4. LERCAN [Concomitant]
     Indication: HYPERTENSION
     Dosage: 1 DF, UNK
  5. ALLOPURINOL [Concomitant]
     Indication: GOUT
     Dosage: 1 DF, UNK
  6. CORTANCYL [Concomitant]
     Indication: CROHN'S DISEASE
     Dosage: 1 DF, UNK

REACTIONS (8)
  - ANAEMIA [None]
  - ASTHENIA [None]
  - HAEMOGLOBIN DECREASED [None]
  - MUCOSAL ULCERATION [None]
  - PALLOR [None]
  - PANCYTOPENIA [None]
  - PLATELET COUNT DECREASED [None]
  - WHITE BLOOD CELL COUNT DECREASED [None]
